FAERS Safety Report 14297446 (Version 2)
Quarter: 2018Q1

REPORT INFORMATION
  Report Type: Spontaneous
  Country: US (occurrence: US)
  Receive Date: 20171218
  Receipt Date: 20180130
  Transmission Date: 20180509
  Serious: Yes (Hospitalization)
  Sender: FDA-Public Use
  Company Number: US-PFIZER INC-2017532762

PATIENT
  Age: 4 Month
  Sex: Female
  Weight: 5.9 kg

DRUGS (3)
  1. GENOTROPIN [Suspect]
     Active Substance: SOMATROPIN
     Dosage: UNK
  2. GENOTROPIN [Suspect]
     Active Substance: SOMATROPIN
     Dosage: UNK
  3. GENOTROPIN [Suspect]
     Active Substance: SOMATROPIN
     Indication: GROWTH HORMONE DEFICIENCY
     Dosage: UNK (0.2MG INJECTED MONDAY,THURSDAY,0.1MG INJECTED ON TUESDAY,WEDNESDAY,FRIDAY,SATURDAY,SUNDAY)
     Dates: start: 20170627

REACTIONS (3)
  - Drug dose omission [Not Recovered/Not Resolved]
  - Device leakage [Unknown]
  - Escherichia urinary tract infection [Unknown]

NARRATIVE: CASE EVENT DATE: 20170929
